FAERS Safety Report 7097943-X (Version None)
Quarter: 2010Q4

REPORT INFORMATION
  Report Type: 
  Country: None (occurrence: None)
  Receive Date: 20101103
  Receipt Date: 20101012
  Transmission Date: 20110411
  Serious: Yes (Death, Hospitalization)
  Sender: FDA-Public Use
  Company Number: JP-SOLVAY-00310005877

PATIENT
  Age: 15 Year
  Sex: Male

DRUGS (2)
  1. LUVOX [Suspect]
     Indication: SOCIAL PHOBIA
     Dosage: ORAL
     Route: 048
  2. TANDOSPIRONE (TANDOSPIRONE) [Suspect]
     Indication: SOCIAL PHOBIA
     Dosage: ORAL
     Route: 048

REACTIONS (16)
  - BLOOD PRESSURE DECREASED [None]
  - CARDIO-RESPIRATORY ARREST [None]
  - CONTINUOUS HAEMODIAFILTRATION [None]
  - CONVULSION [None]
  - DISSEMINATED INTRAVASCULAR COAGULATION [None]
  - HYPERHIDROSIS [None]
  - HYPERTHERMIA MALIGNANT [None]
  - INFLAMMATION [None]
  - LOSS OF CONSCIOUSNESS [None]
  - MULTIPLE DRUG OVERDOSE INTENTIONAL [None]
  - MUSCLE RIGIDITY [None]
  - PUPILLARY REFLEX IMPAIRED [None]
  - RENAL FAILURE [None]
  - RHABDOMYOLYSIS [None]
  - SEROTONIN SYNDROME [None]
  - WHITE BLOOD CELL COUNT INCREASED [None]
